FAERS Safety Report 12712099 (Version 2)
Quarter: 2016Q4

REPORT INFORMATION
  Report Type: Report from Study
  Country: US (occurrence: US)
  Receive Date: 20160902
  Receipt Date: 20161010
  Transmission Date: 20170207
  Serious: Yes (Other)
  Sender: FDA-Public Use
  Company Number: US-PFIZER INC-2016411561

PATIENT

DRUGS (6)
  1. PACLITAXEL. [Suspect]
     Active Substance: PACLITAXEL
     Dosage: 200 MG/M2, CYCLIC (ON DAYS 1-7 OF EACH CYCLE)
  2. CARBOPLATIN. [Suspect]
     Active Substance: CARBOPLATIN
     Indication: NON-SMALL CELL LUNG CANCER STAGE III
     Dosage: AUC 2, WEEKLY
  3. VELIPARIB [Suspect]
     Active Substance: VELIPARIB
     Indication: NON-SMALL CELL LUNG CANCER STAGE III
     Dosage: 80 MG, 2X/DAY (ON DAYS 1-7 OF EACH CYCLE)
     Route: 048
  4. VELIPARIB [Suspect]
     Active Substance: VELIPARIB
     Dosage: UNK
  5. PACLITAXEL. [Suspect]
     Active Substance: PACLITAXEL
     Indication: NON-SMALL CELL LUNG CANCER STAGE III
     Dosage: 45 MG/M2 CYCLIC
  6. CARBOPLATIN. [Suspect]
     Active Substance: CARBOPLATIN
     Dosage: UNK, CYCLIC (AUC 6, ON DAYS 1-7 OF EACH CYCLE)

REACTIONS (2)
  - Oesophagitis [Unknown]
  - Dehydration [Unknown]
